FAERS Safety Report 8373088-3 (Version None)
Quarter: 2012Q2

REPORT INFORMATION
  Report Type: 
  Country: None (occurrence: None)
  Receive Date: 20120521
  Receipt Date: 20120517
  Transmission Date: 20120825
  Serious: Yes (Other)
  Sender: FDA-Public Use
  Company Number: PHFR2012GB001559

PATIENT
  Sex: Male

DRUGS (6)
  1. HYOSCINE HYDROBROMIDE [Concomitant]
     Indication: SALIVARY HYPERSECRETION
     Dosage: 900 MG, UNK
     Route: 048
  2. CLOZARIL [Suspect]
     Indication: SCHIZOPHRENIA
     Route: 048
     Dates: start: 20111221
  3. THIAMINE [Concomitant]
     Indication: GENERAL PHYSICAL HEALTH DETERIORATION
  4. VALPROATE SODIUM [Concomitant]
     Indication: EPILEPSY
     Dosage: 600 MG, UNK
     Route: 048
  5. VITAMINS                           /00067501/ [Concomitant]
     Indication: GENERAL PHYSICAL HEALTH DETERIORATION
  6. LANSOPRAZOLE [Concomitant]
     Indication: GENERAL PHYSICAL HEALTH DETERIORATION

REACTIONS (5)
  - NEUTROPHIL COUNT INCREASED [None]
  - CHRONIC OBSTRUCTIVE PULMONARY DISEASE [None]
  - EPILEPSY [None]
  - WHITE BLOOD CELL COUNT INCREASED [None]
  - LOWER RESPIRATORY TRACT INFECTION [None]
